FAERS Safety Report 4467450-9 (Version None)
Quarter: 2004Q4

REPORT INFORMATION
  Report Type: 
  Country: None (occurrence: None)
  Receive Date: 20041006
  Receipt Date: 20041001
  Transmission Date: 20050328
  Serious: Yes (Hospitalization)
  Sender: FDA-Public Use
  Company Number: BR-MERCK-0410BRA00029

PATIENT
  Age: 63 Year
  Sex: Female

DRUGS (2)
  1. METHYLDOPA [Concomitant]
     Route: 065
  2. VIOXX [Suspect]
     Indication: ARTHRITIS
     Route: 048
     Dates: start: 20040818, end: 20040823

REACTIONS (1)
  - CEREBROVASCULAR ACCIDENT [None]
